FAERS Safety Report 20161200 (Version 1)
Quarter: 2021Q4

REPORT INFORMATION
  Report Type: Spontaneous
  Country: HR (occurrence: HR)
  Receive Date: 20211208
  Receipt Date: 20211208
  Transmission Date: 20220303
  Serious: Yes (Other)
  Sender: FDA-Public Use
  Company Number: None

PATIENT
  Age: 68 Year
  Sex: Female

DRUGS (2)
  1. CLOZAPINE [Suspect]
     Active Substance: CLOZAPINE
     Dosage: ADR ADEQUATELY LABELLED: LEUCOPENIA, CONSCIOUSNESS DISTURBED, ADR NOT ADEQUATELY LABELLED: STATUS EP
     Route: 048
  2. LITHIUM CARBONATE [Suspect]
     Active Substance: LITHIUM CARBONATE
     Dosage: LITHIUM CARBONATE ADRIATIC, ADR ADEQUATELY LABELLED: CONSCIOUSNESS DISTURBED, STATUS EPILEPTICUS, AD
     Route: 048
     Dates: start: 2018

REACTIONS (4)
  - Altered state of consciousness [Unknown]
  - Leukopenia [Unknown]
  - Status epilepticus [Unknown]
  - Lymphadenopathy [Unknown]

NARRATIVE: CASE EVENT DATE: 20210601
